FAERS Safety Report 8377926-X (Version None)
Quarter: 2012Q2

REPORT INFORMATION
  Report Type: 
  Country: None (occurrence: None)
  Receive Date: 20120522
  Receipt Date: 20120508
  Transmission Date: 20120825
  Serious: Yes (Other)
  Sender: FDA-Public Use
  Company Number: CA-ELI_LILLY_AND_COMPANY-CA201205002995

PATIENT
  Sex: Female

DRUGS (6)
  1. CYMBALTA [Suspect]
     Dosage: 30 MG, QOD
     Dates: start: 20120312, end: 20120318
  2. MELOXICAM [Concomitant]
     Dosage: 7.5 MG, PRN
  3. VITAMIN B-12 [Concomitant]
  4. OXYCONTIN [Concomitant]
     Dosage: 10 MG, BID
  5. CYMBALTA [Suspect]
     Indication: PAIN
     Dosage: 30 MG, QD
     Dates: start: 20120101, end: 20120311
  6. ZOPICLONE [Concomitant]
     Dosage: 7.5 MG, UNK

REACTIONS (16)
  - INTENTIONAL DRUG MISUSE [None]
  - VOMITING [None]
  - SUICIDAL IDEATION [None]
  - VISUAL ACUITY REDUCED [None]
  - PAIN IN EXTREMITY [None]
  - CRYING [None]
  - PAIN [None]
  - AGITATION [None]
  - HYPOAESTHESIA [None]
  - PRESYNCOPE [None]
  - DRUG WITHDRAWAL SYNDROME [None]
  - FEELING ABNORMAL [None]
  - DISTURBANCE IN ATTENTION [None]
  - PARAESTHESIA [None]
  - STARING [None]
  - HEADACHE [None]
